FAERS Safety Report 15578290 (Version 4)
Quarter: 2019Q2

REPORT INFORMATION
  Report Type: Report from Study
  Country: None (occurrence: US)
  Receive Date: 20181102
  Receipt Date: 20190525
  Transmission Date: 20190711
  Serious: Yes (Other)
  Sender: FDA-Public Use
  Company Number: US-ABBVIE-18K-163-2537144-00

PATIENT
  Age: 52 Year
  Sex: Female

DRUGS (1)
  1. HUMIRA [Suspect]
     Active Substance: ADALIMUMAB
     Indication: CROHN^S DISEASE
     Dosage: HUMIRA CF
     Route: 058
     Dates: start: 201201

REACTIONS (10)
  - Road traffic accident [Recovering/Resolving]
  - Ependymoma [Not Recovered/Not Resolved]
  - Cyst [Recovering/Resolving]
  - Colitis [Unknown]
  - Muscle spasms [Unknown]
  - Bile duct obstruction [Unknown]
  - Osteoporotic fracture [Unknown]
  - Dental care [Unknown]
  - Spinal fracture [Recovering/Resolving]
  - Hepatic enzyme increased [Unknown]

NARRATIVE: CASE EVENT DATE: 2018
